FAERS Safety Report 9527602 (Version 2)
Quarter: 2013Q4

REPORT INFORMATION
  Report Type: Spontaneous
  Country: US (occurrence: None)
  Receive Date: 20130913
  Receipt Date: 20131024
  Transmission Date: 20140711
  Serious: Yes (Other)
  Sender: FDA-Public Use
  Company Number: ACO_38265_2013

PATIENT
  Sex: Male
  Weight: 83.3 kg

DRUGS (14)
  1. AMPYRA [Suspect]
     Indication: MULTIPLE SCLEROSIS
     Dates: start: 2013, end: 2013
  2. AMBIEN (ZOLPIDEM TARTRATE) [Concomitant]
  3. LYRICA (PREGABALIN) [Concomitant]
  4. MECLIZINE HCL (MECLOZINE HYDROCHLORIDE) [Concomitant]
  5. MIRALAX (MACROGOL) [Concomitant]
  6. SENNA (SENNA ALEXANDRINA) [Concomitant]
  7. RITALIN (METHYLPHENIDATE HYDROCHLORIDE) [Concomitant]
  8. FENTANYL (FENTANYL) [Concomitant]
  9. MORPHINE SULFATE (MORPHINE SULFATE) [Concomitant]
  10. TESSALON PERIE (BENZONATATE) [Concomitant]
  11. ATIVAN (LORAZEPAM) [Concomitant]
  12. LEXAPRO (ESCITALOPRAM OXALATE) [Concomitant]
  13. DURAGESIC (FENTANYL) [Concomitant]
  14. METHYLPHENIDATE (METHYLPHENIDATE HYDROCHLORIDE) [Concomitant]

REACTIONS (3)
  - Transient ischaemic attack [None]
  - Poor quality sleep [None]
  - Therapeutic response unexpected [None]
